FAERS Safety Report 14063235 (Version 1)
Quarter: 2017Q4

REPORT INFORMATION
  Report Type: Spontaneous
  Country: US (occurrence: US)
  Receive Date: 20171009
  Receipt Date: 20171009
  Transmission Date: 20180321
  Serious: No
  Sender: FDA-Public Use
  Company Number: US-SUNOVION-2017SUN004160

PATIENT
  Sex: Female

DRUGS (2)
  1. ESZOPICLONE. [Suspect]
     Active Substance: ESZOPICLONE
     Route: 048
  2. LATUDA [Concomitant]
     Active Substance: LURASIDONE HYDROCHLORIDE

REACTIONS (1)
  - Drug ineffective [Unknown]
